FAERS Safety Report 4764540-8 (Version None)
Quarter: 2005Q3

REPORT INFORMATION
  Report Type: 
  Country: None (occurrence: None)
  Receive Date: 20050909
  Receipt Date: 20050901
  Transmission Date: 20060218
  Serious: Yes (Other)
  Sender: FDA-Public Use
  Company Number: PHEH2005US09756

PATIENT
  Age: 9 Year
  Sex: Male

DRUGS (3)
  1. TRILEPTAL [Suspect]
     Dosage: 600 MG, BID
  2. SEROQUEL [Concomitant]
  3. STRATTERA [Concomitant]

REACTIONS (3)
  - HYPOTHYROIDISM [None]
  - TEMPERATURE INTOLERANCE [None]
  - THYROXINE FREE ABNORMAL [None]
